FAERS Safety Report 6471021-2 (Version None)
Quarter: 2009Q4

REPORT INFORMATION
  Report Type: 
  Country: None (occurrence: None)
  Receive Date: 20091203
  Receipt Date: 20080117
  Transmission Date: 20100525
  Serious: Yes (Disabling)
  Sender: FDA-Public Use
  Company Number: US-ELI_LILLY_AND_COMPANY-US200801003965

PATIENT
  Sex: Female

DRUGS (16)
  1. GEMCITABINE HCL [Suspect]
     Indication: PANCREATIC CARCINOMA
     Dosage: 1000 MG/M2, UNK
     Route: 042
     Dates: start: 20071220
  2. OTHER PHARMA COMPANY INV DRUG [Suspect]
     Indication: PANCREATIC CARCINOMA
     Dosage: 50 MG, UNK
     Route: 042
     Dates: start: 20071220
  3. CARDIZEM [Concomitant]
     Indication: HYPERTENSION
     Dosage: 360 MG, DAILY (1/D)
     Route: 048
     Dates: start: 20061201
  4. LISINOPRIL [Concomitant]
     Indication: HYPERTENSION
     Dosage: 40 MG, DAILY (1/D)
     Route: 048
     Dates: start: 20061201
  5. BENICAR HCT [Concomitant]
     Indication: HYPERTENSION
     Route: 048
     Dates: start: 20071001
  6. LANTUS [Concomitant]
     Indication: DIABETES MELLITUS
     Dosage: 22 U, DAILY (1/D)
     Route: 058
     Dates: start: 20070601
  7. LEVOTHYROXINE SODIUM [Concomitant]
     Indication: HYPOTHYROIDISM
     Dosage: 100 UG, DAILY (1/D)
     Route: 048
     Dates: start: 19870101
  8. VICODIN [Concomitant]
     Indication: PAIN
     Dosage: 1000 MG, UNK
     Route: 048
     Dates: start: 20050101
  9. FORTAMET [Concomitant]
     Indication: DIABETES MELLITUS
     Dosage: 500 MG, DAILY (1/D)
     Route: 048
     Dates: start: 19960101
  10. OSCAL [Concomitant]
     Indication: SUPPLEMENTATION THERAPY
     Dosage: 500 MG, 2/D
     Route: 048
     Dates: start: 20040101
  11. VITAMIN E [Concomitant]
     Indication: SUPPLEMENTATION THERAPY
     Dosage: 400 U, DAILY (1/D)
     Route: 048
     Dates: start: 19940101
  12. AMITRIPTYLINE [Concomitant]
     Indication: ANXIETY
     Dosage: 25 MG, DAILY (1/D)
     Route: 048
     Dates: start: 20070401
  13. MOM [Concomitant]
     Indication: CONSTIPATION
     Dosage: 30 ML, AS NEEDED
     Route: 048
     Dates: start: 20071205
  14. COMPAZINE [Concomitant]
     Indication: NAUSEA
     Dosage: 10 MG, AS NEEDED
     Route: 048
     Dates: start: 20071220
  15. DOCUSATE SODIUM [Concomitant]
     Indication: CONSTIPATION
     Dosage: 50 MG, DAILY (1/D)
     Route: 048
     Dates: start: 20071205
  16. MIRALAX [Concomitant]
     Indication: CONSTIPATION
     Dosage: 17 G, DAILY (1/D)
     Route: 048
     Dates: start: 20071214

REACTIONS (1)
  - UVEITIS [None]
